FAERS Safety Report 9482889 (Version 1)
Quarter: 2013Q3

REPORT INFORMATION
  Report Type: Spontaneous
  Country: US (occurrence: US)
  Receive Date: 20130828
  Receipt Date: 20130828
  Transmission Date: 20140515
  Serious: Yes (Death)
  Sender: FDA-Public Use
  Company Number: US-AMGEN-KDL239838

PATIENT
  Age: 87 Year
  Sex: Female

DRUGS (11)
  1. PROCRIT [Suspect]
     Indication: ANAEMIA OF MALIGNANT DISEASE
     Dosage: UNK UNK, 2 TIMES/WK
     Route: 065
     Dates: start: 200702, end: 200708
  2. HYDROCODONE [Concomitant]
     Dosage: UNK UNK, UNK
     Route: 065
  3. RISPERIDONE [Concomitant]
     Dosage: 1 MG, UNK
     Route: 065
     Dates: start: 2007
  4. CLOPIDOGREL BISULFATE [Concomitant]
     Dosage: 75 MG, UNK
     Route: 065
  5. GLYCERYL TRINITRATE [Concomitant]
     Dosage: .3 MG, UNK
     Route: 065
  6. ALENDRONATE SODIUM [Concomitant]
     Dosage: UNK UNK, UNK
     Route: 065
  7. ESOMEPRAZOLE MAGNESIUM [Concomitant]
     Dosage: UNK UNK, UNK
     Route: 065
  8. METOPROLOL TARTRATE [Concomitant]
     Dosage: UNK UNK, UNK
     Route: 065
  9. PREDNISONE [Concomitant]
     Dosage: 2.5 MG, UNK
     Route: 065
  10. ZINC [Concomitant]
     Dosage: UNK UNK, UNK
     Route: 065
  11. ACETYLSALICYLIC ACID [Concomitant]
     Dosage: UNK UNK, UNK
     Route: 065

REACTIONS (1)
  - Death [Fatal]
